FAERS Safety Report 7571694-7 (Version None)
Quarter: 2011Q2

REPORT INFORMATION
  Report Type: 
  Country: None (occurrence: None)
  Receive Date: 20110624
  Receipt Date: 20110615
  Transmission Date: 20111010
  Serious: Yes (Hospitalization, Other)
  Sender: FDA-Public Use
  Company Number: DE-ALEXION-A201100890

PATIENT
  Sex: Female

DRUGS (6)
  1. PANTOPRAZOLE [Concomitant]
     Indication: PROPHYLAXIS AGAINST GASTROINTESTINAL ULCER
     Dosage: 40 MG UNK
     Route: 042
     Dates: start: 20110530
  2. PHENYTOIN [Concomitant]
     Indication: EPILEPSY
     Dosage: 250 MG UNK
     Route: 042
     Dates: start: 20110530
  3. KEPPRA [Concomitant]
     Indication: EPILEPSY
     Dosage: 1000 MG UNK
     Route: 042
     Dates: start: 20110530, end: 20110531
  4. MENCEVAX [Concomitant]
     Indication: IMMUNISATION
     Dosage: UNK
     Dates: start: 20110603, end: 20110603
  5. HEPARIN [Concomitant]
     Indication: THROMBOSIS PROPHYLAXIS
     Dosage: 1500 IE UNK
     Route: 042
     Dates: start: 20110530
  6. SOLIRIS [Suspect]
     Indication: HAEMOLYTIC URAEMIC SYNDROME
     Dosage: 900 MG UNK
     Route: 042
     Dates: start: 20110530, end: 20110613

REACTIONS (3)
  - SEPSIS [None]
  - PLEURAL EFFUSION [None]
  - PNEUMONIA HERPES VIRAL [None]
